FAERS Safety Report 9344433 (Version 1)
Quarter: 2013Q2

REPORT INFORMATION
  Report Type: Spontaneous
  Country: IN (occurrence: IN)
  Receive Date: 20130612
  Receipt Date: 20130612
  Transmission Date: 20140414
  Serious: No
  Sender: FDA-Public Use
  Company Number: IN-B.I. PHARMACEUTICALS,INC./RIDGEFIELD-2013-BI-16258IG

PATIENT
  Sex: 0

DRUGS (1)
  1. LINAGLIPTIN [Suspect]

REACTIONS (1)
  - Rash [Unknown]
